FAERS Safety Report 9277308 (Version 1)
Quarter: 2013Q2

REPORT INFORMATION
  Report Type: Spontaneous
  Country: US (occurrence: None)
  Receive Date: 20130503
  Receipt Date: 20130503
  Transmission Date: 20140414
  Serious: No
  Sender: FDA-Public Use
  Company Number: None

PATIENT
  Age: 5 Year
  Sex: Female

DRUGS (1)
  1. PPD SKIN TEST [Suspect]

REACTIONS (3)
  - Erythema [None]
  - Urticaria [None]
  - Tongue disorder [None]
